FAERS Safety Report 23783225 (Version 1)
Quarter: 2024Q2

REPORT INFORMATION
  Report Type: Spontaneous
  Country: PL (occurrence: PL)
  Receive Date: 20240425
  Receipt Date: 20240425
  Transmission Date: 20240716
  Serious: Yes (Death, Other)
  Sender: FDA-Public Use
  Company Number: PL-GILEAD-2024-0670533

PATIENT
  Age: 43 Year
  Sex: Female

DRUGS (4)
  1. BIKTARVY [Suspect]
     Active Substance: BICTEGRAVIR SODIUM\EMTRICITABINE\TENOFOVIR ALAFENAMIDE FUMARATE
     Indication: Prophylaxis against HIV infection
     Dosage: 1 X 1 TABLET
     Route: 065
  2. BISEPTOL [Concomitant]
     Active Substance: SULFAMETHOXAZOLE\TRIMETHOPRIM
     Dosage: 4 X 960 MG
  3. DEXAMETHASONE [Concomitant]
     Active Substance: DEXAMETHASONE
     Dosage: 2 X 8 MG
  4. ENOXAPARIN SODIUM [Concomitant]
     Active Substance: ENOXAPARIN SODIUM
     Dosage: 1 X 0.4 ML

REACTIONS (5)
  - Death [Fatal]
  - Renal tubular necrosis [Unknown]
  - Cytomegalovirus infection [Unknown]
  - Hepatic steatosis [Unknown]
  - Off label use [Recovered/Resolved]
